FAERS Safety Report 7107757-X (Version None)
Quarter: 2010Q4

REPORT INFORMATION
  Report Type: 
  Country: None (occurrence: None)
  Receive Date: 20101117
  Receipt Date: 20101110
  Transmission Date: 20110411
  Serious: Yes (Death, Other)
  Sender: FDA-Public Use
  Company Number: JP-JNJFOC-20101104057

PATIENT
  Age: 67 Year
  Sex: Male

DRUGS (4)
  1. DUROTEP MT [Suspect]
     Indication: PAIN IN EXTREMITY
     Dosage: ONCE IN 3 DAYS
     Route: 062
  2. RIVOTRIL [Concomitant]
     Indication: ILL-DEFINED DISORDER
     Route: 048
  3. NEUROTROPIN [Concomitant]
     Indication: ILL-DEFINED DISORDER
     Route: 065
  4. MORPHINE SULFATE [Concomitant]
     Dosage: CONTINUED FOR 28 DAYS
     Route: 065

REACTIONS (3)
  - DEATH [None]
  - PAIN [None]
  - WRONG TECHNIQUE IN DRUG USAGE PROCESS [None]
